FAERS Safety Report 18211150 (Version 7)
Quarter: 2021Q1

REPORT INFORMATION
  Report Type: Report from Study
  Country: None (occurrence: NL)
  Receive Date: 20200830
  Receipt Date: 20210310
  Transmission Date: 20210419
  Serious: Yes (Hospitalization)
  Sender: FDA-Public Use
  Company Number: NL-ABBVIE-19S-114-2614680-00

PATIENT
  Age: 79 Year
  Sex: Female

DRUGS (10)
  1. DUODOPA [Suspect]
     Active Substance: CARBIDOPA\LEVODOPA
     Dosage: MD: 11.0 ML, CD: 2.8 ML/HR, ED: 1.0 ML
     Route: 050
  2. DUODOPA [Suspect]
     Active Substance: CARBIDOPA\LEVODOPA
     Dosage: MD: 11.0 ML, CD: 3.1 ML/H, ED: 1.0 ML
     Route: 050
  3. SINEMET [Concomitant]
     Active Substance: CARBIDOPA\LEVODOPA
     Indication: PRODUCT USED FOR UNKNOWN INDICATION
  4. DUODOPA [Suspect]
     Active Substance: CARBIDOPA\LEVODOPA
     Dosage: CD 2.5 (DECREASED CONTINUOUS DOSE FROM 2.7 ML/HR TO 2.5 ML/HR)
     Route: 050
  5. TEMAZEPAM. [Concomitant]
     Active Substance: TEMAZEPAM
     Indication: SLEEP DISORDER THERAPY
     Dosage: 2X PER WEEK 10MG IF NEEDED
  6. LEVODOPA/CARBIDOPA MGA [Concomitant]
     Indication: PARKINSON^S DISEASE
  7. DUODOPA [Suspect]
     Active Substance: CARBIDOPA\LEVODOPA
     Dosage: RESET CD TO 2.7 ML/HOUR, DUE TO AN INCREASE IN OFF COMPLAINTS?MD 11 CD 2.7 ED 1
     Route: 050
     Dates: start: 20190617
  8. TERRA?CORTRIL [Concomitant]
     Active Substance: HYDROCORTISONE ACETATE\OXYTETRACYCLINE HYDROCHLORIDE
     Indication: EXCESSIVE GRANULATION TISSUE
  9. DUODOPA [Suspect]
     Active Substance: CARBIDOPA\LEVODOPA
     Dosage: MD: 11.0 ML, CD: 2.9 ML/HR, ED: 1.0 ML
     Route: 050
  10. DUODOPA [Suspect]
     Active Substance: CARBIDOPA\LEVODOPA
     Indication: PARKINSON^S DISEASE
     Dosage: MD 11 CD 2.7 ED 1.0ML?16 HOUR ADMINISTRATION, 1 CASSETTE
     Route: 050
     Dates: start: 20181212

REACTIONS (63)
  - Aptyalism [Not Recovered/Not Resolved]
  - Device issue [Unknown]
  - Hearing aid therapy [Not Recovered/Not Resolved]
  - Stoma site hypersensitivity [Recovered/Resolved]
  - Initial insomnia [Recovering/Resolving]
  - Freezing phenomenon [Not Recovered/Not Resolved]
  - Stoma site discharge [Unknown]
  - Drug metabolite level high [Unknown]
  - Feeding disorder [Recovered/Resolved]
  - Nocturia [Not Recovered/Not Resolved]
  - Asthenia [Not Recovered/Not Resolved]
  - Stoma site pain [Recovered/Resolved]
  - Stoma site discharge [Recovering/Resolving]
  - Confusional state [Recovered/Resolved]
  - Accident [Unknown]
  - Gait inability [Recovering/Resolving]
  - Stress [Not Recovered/Not Resolved]
  - Muscle rigidity [Not Recovered/Not Resolved]
  - Dysphagia [Not Recovered/Not Resolved]
  - Hyponatraemia [Unknown]
  - Weight decreased [Recovered/Resolved]
  - Stoma site erythema [Not Recovered/Not Resolved]
  - Parkinson^s disease [Not Recovered/Not Resolved]
  - Fibroma [Not Recovered/Not Resolved]
  - Ageusia [Not Recovered/Not Resolved]
  - Faeces hard [Recovered/Resolved]
  - Therapeutic product effect incomplete [Not Recovered/Not Resolved]
  - Gait disturbance [Not Recovered/Not Resolved]
  - Medical device site discomfort [Recovered/Resolved]
  - Insomnia [Not Recovered/Not Resolved]
  - Stoma site haemorrhage [Recovered/Resolved]
  - Malaise [Not Recovered/Not Resolved]
  - Fine motor skill dysfunction [Not Recovered/Not Resolved]
  - Joint dislocation [Not Recovered/Not Resolved]
  - Tension [Not Recovered/Not Resolved]
  - Parkinsonian gait [Unknown]
  - Balance disorder [Not Recovered/Not Resolved]
  - Urinary tract infection [Not Recovered/Not Resolved]
  - Hyperkinesia [Recovering/Resolving]
  - Unevaluable event [Not Recovered/Not Resolved]
  - Excessive granulation tissue [Unknown]
  - Middle insomnia [Recovering/Resolving]
  - Fall [Not Recovered/Not Resolved]
  - Extra dose administered [Not Recovered/Not Resolved]
  - Sleep disorder [Not Recovered/Not Resolved]
  - Musculoskeletal stiffness [Recovering/Resolving]
  - Feeling abnormal [Not Recovered/Not Resolved]
  - Mobility decreased [Unknown]
  - Fatigue [Not Recovered/Not Resolved]
  - Stoma site discharge [Recovered/Resolved]
  - Hallucination [Recovered/Resolved]
  - Dyskinesia [Recovering/Resolving]
  - Hallucination [Recovered/Resolved]
  - Somnolence [Not Recovered/Not Resolved]
  - Medical device site pain [Recovered/Resolved]
  - Device dislocation [Not Recovered/Not Resolved]
  - Head discomfort [Not Recovered/Not Resolved]
  - Medical device site pain [Recovered/Resolved]
  - Stoma site irritation [Not Recovered/Not Resolved]
  - On and off phenomenon [Not Recovered/Not Resolved]
  - Malaise [Recovered/Resolved]
  - Arthralgia [Recovering/Resolving]
  - Stoma site haemorrhage [Recovered/Resolved]

NARRATIVE: CASE EVENT DATE: 201812
